FAERS Safety Report 7310695-0 (Version None)
Quarter: 2011Q1

REPORT INFORMATION
  Report Type: 
  Country: None (occurrence: None)
  Receive Date: 20110210
  Receipt Date: 20110126
  Transmission Date: 20110831
  Serious: Yes (Hospitalization)
  Sender: FDA-Public Use
  Company Number: CRC-11-019

PATIENT
  Age: 29 Year
  Sex: Male

DRUGS (9)
  1. OXALIPLATIN [Suspect]
     Indication: COLORECTAL CANCER STAGE III
     Dosage: 160MG; EVERY TWO WEEKS; IV
     Route: 042
     Dates: start: 20101006, end: 20110113
  2. ALOXI [Concomitant]
  3. CALCIUM [Concomitant]
  4. MAGNESIUM [Concomitant]
  5. DEXAMETHASONE [Concomitant]
  6. MULTI-VITAMINS [Concomitant]
  7. COMPAZINE [Concomitant]
  8. PROTONIX [Concomitant]
  9. NAPROXEN SODIUM [Concomitant]

REACTIONS (2)
  - PANCREATITIS [None]
  - PRODUCT SUBSTITUTION ISSUE [None]
